FAERS Safety Report 9726461 (Version 1)
Quarter: 2013Q4

REPORT INFORMATION
  Report Type: Spontaneous
  Country: US (occurrence: US)
  Receive Date: 20131203
  Receipt Date: 20131203
  Transmission Date: 20140711
  Serious: Yes (Hospitalization, Other)
  Sender: FDA-Public Use
  Company Number: US-PFIZER INC-2013340188

PATIENT
  Age: 45 Year
  Sex: Male

DRUGS (11)
  1. INSPRA [Suspect]
     Dosage: 25 MG, 1X/DAY
     Route: 048
  2. ATORVASTATIN [Concomitant]
     Dosage: 40 MG, 1X/DAY (AT BEDTIME)
     Route: 048
  3. CARVEDILOL [Concomitant]
     Dosage: 12.5 MG, 2X/DAY
     Route: 048
  4. DIGOXIN [Concomitant]
     Dosage: 0.125 MG, 1X/DAY
     Route: 048
  5. HYDRALAZINE [Concomitant]
     Indication: CARDIAC FAILURE
     Dosage: 100 MG(1 TAB), EVERY 8 HOURS
     Route: 048
  6. ISOSORBIDE MN [Concomitant]
     Dosage: 60 MG, 1X/DAY (IN THE MORNING)
     Route: 048
  7. LISINOPRIL [Concomitant]
     Dosage: 20 MG, 2X/DAY
     Route: 048
  8. SILDENAFIL [Concomitant]
     Dosage: 0.5 DF, 3X/DAY
     Route: 048
  9. WARFARIN [Concomitant]
     Indication: ANTICOAGULANT THERAPY
     Dosage: 5 MG, 1X/DAY
     Route: 048
  10. WARFARIN [Concomitant]
     Indication: CARDIAC FAILURE
  11. IMDUR [Concomitant]
     Indication: CARDIAC FAILURE

REACTIONS (1)
  - Cardiac failure congestive [Unknown]
